FAERS Safety Report 5567731-1 (Version None)
Quarter: 2007Q4

REPORT INFORMATION
  Report Type: 
  Country: None (occurrence: None)
  Receive Date: 20071205
  Receipt Date: 20071203
  Transmission Date: 20080405
  Serious: Yes (Hospitalization)
  Sender: FDA-Public Use
  Company Number: IG487

PATIENT
  Age: 3 Day
  Sex: Male
  Weight: 2.5 kg

DRUGS (6)
  1. FLEBOGAMMA 5% DIF [Suspect]
     Indication: ABO INCOMPATIBILITY
     Dosage: 1G/KG/DAY FOR 2 DAYS; IV
     Route: 042
     Dates: start: 20070619, end: 20070620
  2. FLEBOGAMMA 5% DIF [Suspect]
     Indication: JAUNDICE ACHOLURIC
     Dosage: 1G/KG/DAY FOR 2 DAYS; IV
     Route: 042
     Dates: start: 20070619, end: 20070620
  3. PHOTOTHERAPY [Concomitant]
  4. ANTIBIOTICS [Concomitant]
  5. ANALGESIC [Concomitant]
  6. CLEXANE (HEPARIN) [Concomitant]

REACTIONS (5)
  - COAGULOPATHY [None]
  - ERYTHEMA [None]
  - INTESTINAL PERFORATION [None]
  - NECROTISING ENTEROCOLITIS NEONATAL [None]
  - THROMBOSIS [None]
